FAERS Safety Report 5745455-5 (Version None)
Quarter: 2008Q2

REPORT INFORMATION
  Report Type: 
  Country: None (occurrence: None)
  Receive Date: 20080521
  Receipt Date: 20080513
  Transmission Date: 20081010
  Serious: Yes (Hospitalization)
  Sender: FDA-Public Use
  Company Number: US-SANOFI-SYNTHELABO-A03200801367

PATIENT
  Sex: Female
  Weight: 78.5 kg

DRUGS (4)
  1. AMBIEN CR [Suspect]
     Indication: SLEEP DISORDER
     Route: 048
     Dates: start: 20070420, end: 20071220
  2. PAXIL [Concomitant]
     Indication: DEPRESSION
     Route: 065
  3. GEODON [Concomitant]
     Indication: INSOMNIA
     Route: 065
  4. PREMARIN [Concomitant]
     Indication: DRUG USE FOR UNKNOWN INDICATION
     Route: 065

REACTIONS (2)
  - ABDOMINAL PAIN UPPER [None]
  - ORAL DISCOMFORT [None]
